FAERS Safety Report 15508060 (Version 1)
Quarter: 2018Q4

REPORT INFORMATION
  Report Type: Spontaneous
  Country: US (occurrence: US)
  Receive Date: 20181016
  Receipt Date: 20181016
  Transmission Date: 20190205
  Serious: No
  Sender: FDA-Public Use
  Company Number: US-NEXGEN PHARMA, INC.-2056213

PATIENT
  Age: 38 Year
  Sex: Male

DRUGS (1)
  1. CHENODAL [Suspect]
     Active Substance: CHENODIOL
     Route: 048
     Dates: start: 20091218, end: 20180815

REACTIONS (6)
  - Coordination abnormal [Unknown]
  - Decreased appetite [Unknown]
  - Somnolence [Unknown]
  - Sluggishness [Unknown]
  - Asthenia [Unknown]
  - Liver function test abnormal [Unknown]
